FAERS Safety Report 7287736-2 (Version None)
Quarter: 2011Q1

REPORT INFORMATION
  Report Type: 
  Country: None (occurrence: None)
  Receive Date: 20110211
  Receipt Date: 20110204
  Transmission Date: 20110831
  Serious: Yes (Other)
  Sender: FDA-Public Use
  Company Number: US-JNJFOC-20110201894

PATIENT
  Sex: Female
  Weight: 68.04 kg

DRUGS (4)
  1. FENTANYL TRANSDERMAL SYSTEM [Suspect]
     Indication: FIBROMYALGIA
     Route: 062
  2. DURAGESIC-50 [Suspect]
     Dosage: NDC#50458-0093-05
     Route: 062
  3. DURAGESIC-50 [Suspect]
     Indication: FIBROMYALGIA
     Route: 062
  4. DURAGESIC-50 [Suspect]
     Route: 062

REACTIONS (6)
  - HEPATIC CIRRHOSIS [None]
  - DEPRESSION [None]
  - VEIN DISORDER [None]
  - DRUG INEFFECTIVE [None]
  - THYROID DISORDER [None]
  - ADVERSE EVENT [None]
